FAERS Safety Report 6299060-5 (Version None)
Quarter: 2009Q3

REPORT INFORMATION
  Report Type: 
  Country: None (occurrence: None)
  Receive Date: 20090806
  Receipt Date: 20090527
  Transmission Date: 20100115
  Serious: No
  Sender: FDA-Public Use
  Company Number: US-BAYER-200921977NA

PATIENT
  Age: 38 Year
  Sex: Female
  Weight: 95 kg

DRUGS (1)
  1. MIRENA [Suspect]
     Indication: CONTRACEPTION
     Dosage: CONTINUOUS
     Route: 015
     Dates: start: 20050301

REACTIONS (4)
  - ABDOMINAL PAIN LOWER [None]
  - AMENORRHOEA [None]
  - HYPOMENORRHOEA [None]
  - VAGINAL DISCHARGE [None]
